FAERS Safety Report 24009866 (Version 1)
Quarter: 2024Q2

REPORT INFORMATION
  Report Type: Spontaneous
  Country: US (occurrence: US)
  Receive Date: 20240625
  Receipt Date: 20240625
  Transmission Date: 20240716
  Serious: Yes (Hospitalization)
  Sender: FDA-Public Use
  Company Number: US-FARMAPROD-202404-1641

PATIENT
  Sex: Male

DRUGS (5)
  1. OXERVATE [Suspect]
     Active Substance: CENEGERMIN-BKBJ
     Indication: Neurotrophic keratopathy
     Route: 047
     Dates: start: 20240419
  2. OXERVATE [Suspect]
     Active Substance: CENEGERMIN-BKBJ
  3. OXERVATE [Suspect]
     Active Substance: CENEGERMIN-BKBJ
  4. OXERVATE [Suspect]
     Active Substance: CENEGERMIN-BKBJ
  5. ANBESOL REGULAR STRENGTH GEL [Concomitant]
     Active Substance: BENZOCAINE

REACTIONS (8)
  - Hospitalisation [Unknown]
  - Wrong technique in product usage process [Unknown]
  - Ocular discomfort [Unknown]
  - Eyelid pain [Unknown]
  - Ocular discomfort [Unknown]
  - Dry eye [Unknown]
  - Product administration error [Unknown]
  - Product dose omission issue [Unknown]
